FAERS Safety Report 16110577 (Version 1)
Quarter: 2019Q1

REPORT INFORMATION
  Report Type: Spontaneous
  Country: DE (occurrence: DE)
  Receive Date: 20190325
  Receipt Date: 20190325
  Transmission Date: 20190418
  Serious: Yes (Other)
  Sender: FDA-Public Use
  Company Number: DE-TEVA-2019-DE-1028298

PATIENT
  Sex: Female

DRUGS (2)
  1. CYANOCOBALAMIN. [Suspect]
     Active Substance: CYANOCOBALAMIN
     Indication: ABDOMINAL DISCOMFORT
     Dosage: SYRINGES, FOR MANY YEARS
     Route: 065
  2. CEFASEL 100 ?G [Interacting]
     Active Substance: SODIUM SELENITE
     Indication: SELENIUM DEFICIENCY
     Dates: start: 20190124

REACTIONS (29)
  - Hypersomnia [Not Recovered/Not Resolved]
  - Headache [Unknown]
  - Asthenia [Unknown]
  - Disorientation [Unknown]
  - Neck pain [Unknown]
  - Abdominal discomfort [Unknown]
  - Faeces discoloured [Unknown]
  - Vertigo [Recovered/Resolved]
  - Gingival recession [Not Recovered/Not Resolved]
  - Glossodynia [Not Recovered/Not Resolved]
  - Dizziness [Unknown]
  - Abdominal pain [Unknown]
  - Muscle spasms [Unknown]
  - Drug interaction [Unknown]
  - Gingival pain [Not Recovered/Not Resolved]
  - Acne [Unknown]
  - Skin haemorrhage [Unknown]
  - Bladder pain [Unknown]
  - Fatigue [Unknown]
  - Thyroid pain [Unknown]
  - Fall [Unknown]
  - Movement disorder [Unknown]
  - Biliary colic [Unknown]
  - Diarrhoea [Recovering/Resolving]
  - Mental impairment [Unknown]
  - Gingival discolouration [Not Recovered/Not Resolved]
  - Incontinence [Unknown]
  - Somnolence [Unknown]
  - Anal incontinence [Recovering/Resolving]

NARRATIVE: CASE EVENT DATE: 2019
